FAERS Safety Report 7471198-6 (Version None)
Quarter: 2011Q2

REPORT INFORMATION
  Report Type: 
  Country: None (occurrence: None)
  Receive Date: 20110510
  Receipt Date: 20110502
  Transmission Date: 20111010
  Serious: Yes (Death)
  Sender: FDA-Public Use
  Company Number: GR-TEVA-280458ISR

PATIENT
  Age: 50 Year
  Sex: Male

DRUGS (5)
  1. RITUXAN [Suspect]
     Indication: SPLENIC MARGINAL ZONE LYMPHOMA
  2. VINCRISTINE [Suspect]
     Indication: SPLENIC MARGINAL ZONE LYMPHOMA
  3. PREDNISONE [Suspect]
     Indication: SPLENIC MARGINAL ZONE LYMPHOMA
  4. DOXORUBICIN HCL [Suspect]
     Indication: SPLENIC MARGINAL ZONE LYMPHOMA
  5. CYCLOPHOSPHAMIDE [Suspect]
     Indication: SPLENIC MARGINAL ZONE LYMPHOMA

REACTIONS (2)
  - HEPATITIS B [None]
  - MULTI-ORGAN FAILURE [None]
